FAERS Safety Report 14609761 (Version 1)
Quarter: 2018Q1

REPORT INFORMATION
  Report Type: Spontaneous
  Country: US (occurrence: US)
  Receive Date: 20180307
  Receipt Date: 20180307
  Transmission Date: 20180509
  Serious: Yes (Life-Threatening, Hospitalization, Other)
  Sender: FDA-Public Use
  Company Number: None

PATIENT
  Age: 30 Year
  Sex: Male
  Weight: 75 kg

DRUGS (4)
  1. BUPIVACAINE. [Suspect]
     Active Substance: BUPIVACAINE
     Indication: TIBIA FRACTURE
     Dosage: PERIPHERAL CATHETER FOR NERVE BLOCK
     Dates: start: 20180301, end: 20180303
  2. BUPIVACAINE. [Suspect]
     Active Substance: BUPIVACAINE
     Indication: FRACTURE TREATMENT
     Dosage: PERIPHERAL CATHETER FOR NERVE BLOCK
     Dates: start: 20180301, end: 20180303
  3. PERCOCET [Concomitant]
     Active Substance: ACETAMINOPHEN\OXYCODONE HYDROCHLORIDE
  4. BUPIVACAINE. [Suspect]
     Active Substance: BUPIVACAINE
     Indication: FIBULA FRACTURE
     Dosage: PERIPHERAL CATHETER FOR NERVE BLOCK
     Dates: start: 20180301, end: 20180303

REACTIONS (3)
  - Generalised tonic-clonic seizure [None]
  - Nervous system disorder [None]
  - Toxicity to various agents [None]

NARRATIVE: CASE EVENT DATE: 20180303
